FAERS Safety Report 26001926 (Version 1)
Quarter: 2025Q4

REPORT INFORMATION
  Report Type: Spontaneous
  Country: US (occurrence: None)
  Receive Date: 20251105
  Receipt Date: 20251105
  Transmission Date: 20260118
  Serious: No
  Sender: FDA-CTU
  Company Number: None

PATIENT
  Age: 37 Year
  Sex: Male

DRUGS (2)
  1. OCTAGAM IMMUNE GLOBULIN (HUMAN) [Suspect]
     Active Substance: HUMAN IMMUNOGLOBULIN G
     Dosage: 45 G GRAM(S) DAILY
  2. OCTAGAM IMMUNE GLOBULIN (HUMAN) [Suspect]
     Active Substance: HUMAN IMMUNOGLOBULIN G
     Dosage: 45 G GRAM(S) DAILY INTRAVENOUS
     Route: 042

REACTIONS (3)
  - Pruritus [None]
  - Skin discolouration [None]
  - Infusion related reaction [None]

NARRATIVE: CASE EVENT DATE: 20251104
